FAERS Safety Report 18078191 (Version 1)
Quarter: 2020Q3

REPORT INFORMATION
  Report Type: Spontaneous
  Country: US (occurrence: US)
  Receive Date: 20200727
  Receipt Date: 20200727
  Transmission Date: 20201103
  Serious: No
  Sender: FDA-Public Use
  Company Number: US-SEATTLE GENETICS-2020SGN02239

PATIENT
  Sex: Female

DRUGS (3)
  1. TUKYSA [Suspect]
     Active Substance: TUCATINIB
     Indication: BREAST CANCER FEMALE
     Dosage: 150 MG
  2. TUKYSA [Suspect]
     Active Substance: TUCATINIB
     Indication: BREAST CANCER METASTATIC
  3. KANJINTI [Suspect]
     Active Substance: TRASTUZUMAB-ANNS

REACTIONS (13)
  - Food craving [Unknown]
  - Unevaluable event [Recovering/Resolving]
  - Pain [Unknown]
  - Fatigue [Recovering/Resolving]
  - Dry mouth [Unknown]
  - Acne [Unknown]
  - Decreased appetite [Recovering/Resolving]
  - Asthenia [Unknown]
  - Headache [Unknown]
  - Nausea [Unknown]
  - Lip dry [Unknown]
  - Somnolence [Unknown]
  - Dizziness [Recovering/Resolving]
